FAERS Safety Report 11676094 (Version 1)
Quarter: 2015Q4

REPORT INFORMATION
  Report Type: Spontaneous
  Country: US (occurrence: US)
  Receive Date: 20151027
  Receipt Date: 20151027
  Transmission Date: 20160304
  Serious: No
  Sender: FDA-Public Use
  Company Number: US-ELI_LILLY_AND_COMPANY-US201007005837

PATIENT
  Sex: Female
  Weight: 39 kg

DRUGS (4)
  1. FORTEO [Suspect]
     Active Substance: TERIPARATIDE
     Dosage: 20 UG, DAILY (1/D)
     Route: 058
  2. LIDOCAIN [Concomitant]
     Active Substance: LIDOCAINE
     Dosage: UNK, OTHER
  3. FORTEO [Suspect]
     Active Substance: TERIPARATIDE
     Indication: OSTEOPOROSIS
     Dosage: 20 UG, DAILY (1/D)
     Route: 058
     Dates: start: 20100514
  4. FORTEO [Suspect]
     Active Substance: TERIPARATIDE
     Dosage: 20 UG, DAILY (1/D)
     Route: 058
     Dates: start: 20100702

REACTIONS (11)
  - Abdominal pain upper [Unknown]
  - Nausea [Unknown]
  - Poor quality sleep [Unknown]
  - Abdominal discomfort [Unknown]
  - Dyspepsia [Unknown]
  - Dizziness [Unknown]
  - Constipation [Unknown]
  - Arthralgia [Recovered/Resolved]
  - Pain [Unknown]
  - Asthenia [Unknown]
  - Fatigue [Not Recovered/Not Resolved]
